FAERS Safety Report 8353394-9 (Version None)
Quarter: 2012Q2

REPORT INFORMATION
  Report Type: 
  Country: None (occurrence: None)
  Receive Date: 20120511
  Receipt Date: 20120511
  Transmission Date: 20120825
  Serious: No
  Sender: FDA-Public Use
  Company Number: US-PFIZER INC-2012009939

PATIENT
  Sex: Male
  Weight: 78.01 kg

DRUGS (3)
  1. LEVAQUIN [Concomitant]
     Dosage: 500 MG, DAILY
  2. CHANTIX [Suspect]
     Dosage: 1 MG, UNK
     Route: 048
     Dates: start: 20120101, end: 20120110
  3. PREDNISONE [Concomitant]
     Dosage: 30 MG, UNK

REACTIONS (1)
  - NO ADVERSE EVENT [None]
